FAERS Safety Report 8132733-8 (Version None)
Quarter: 2012Q1

REPORT INFORMATION
  Report Type: 
  Country: None (occurrence: None)
  Receive Date: 20120213
  Receipt Date: 20120209
  Transmission Date: 20120608
  Serious: No
  Sender: FDA-Public Use
  Company Number: US-BAYER-2012-013955

PATIENT

DRUGS (1)
  1. AVELOX [Suspect]

REACTIONS (2)
  - DIZZINESS [None]
  - PRESYNCOPE [None]
